FAERS Safety Report 7419434-6 (Version None)
Quarter: 2011Q2

REPORT INFORMATION
  Report Type: 
  Country: None (occurrence: None)
  Receive Date: 20110418
  Receipt Date: 20110408
  Transmission Date: 20111010
  Serious: Yes (Hospitalization, Other)
  Sender: FDA-Public Use
  Company Number: AR-AMGEN-ARGSP2011014391

PATIENT
  Age: 72 Year
  Sex: Female
  Weight: 52 kg

DRUGS (4)
  1. DICLOFENAC [Concomitant]
     Dosage: UNK
     Route: 048
  2. METFORMIN [Concomitant]
     Dosage: UNK
  3. ENBREL [Suspect]
     Indication: RHEUMATOID ARTHRITIS
     Dosage: 50 MG, WEEKLY
     Route: 058
     Dates: start: 20110216, end: 20110224
  4. ENBREL [Suspect]
     Dosage: UNK
     Route: 058
     Dates: start: 20110101

REACTIONS (4)
  - PULMONARY FIBROSIS [None]
  - GASTRITIS [None]
  - PULMONARY OEDEMA [None]
  - NEPHROLITHIASIS [None]
